FAERS Safety Report 9295079 (Version 2)
Quarter: 2013Q2

REPORT INFORMATION
  Report Type: Spontaneous
  Country: JP (occurrence: JP)
  Receive Date: 20130517
  Receipt Date: 20130531
  Transmission Date: 20140414
  Serious: No
  Sender: FDA-Public Use
  Company Number: JP-PFIZER INC-2013153052

PATIENT
  Age: 8 Decade
  Sex: Male

DRUGS (2)
  1. LYRICA [Suspect]
     Dosage: 150 MG, DAILY (DAILY DOSE FREQUENCY UNKNOWN)
     Route: 048
  2. LYRICA [Suspect]
     Dosage: 300 MG, DAILY (DAILY DOSE FREQUENCY UNKNOWN)
     Route: 048

REACTIONS (1)
  - Memory impairment [Unknown]
